FAERS Safety Report 6396067-4 (Version None)
Quarter: 2009Q4

REPORT INFORMATION
  Report Type: 
  Country: None (occurrence: None)
  Receive Date: 20091009
  Receipt Date: 20091001
  Transmission Date: 20100525
  Serious: Yes (Hospitalization, Other)
  Sender: FDA-Public Use
  Company Number: CN-WATSON-2009-08167

PATIENT
  Age: 19 Year
  Sex: Male

DRUGS (1)
  1. TRAMADOL HCL [Suspect]
     Indication: POISONING
     Dosage: 6 G, SINGLE
     Route: 048

REACTIONS (15)
  - ACUTE RESPIRATORY DISTRESS SYNDROME [None]
  - BLOOD CREATINE PHOSPHOKINASE INCREASED [None]
  - CARDIAC DISORDER [None]
  - COMA [None]
  - CONVULSION [None]
  - ELECTROLYTE IMBALANCE [None]
  - HEPATIC FUNCTION ABNORMAL [None]
  - HYPERREFLEXIA [None]
  - METABOLIC ACIDOSIS [None]
  - MULTI-ORGAN FAILURE [None]
  - RENAL IMPAIRMENT [None]
  - RESPIRATORY ACIDOSIS [None]
  - RESPIRATORY DEPRESSION [None]
  - TACHYCARDIA [None]
  - TRANSAMINASES INCREASED [None]
